FAERS Safety Report 11423550 (Version 1)
Quarter: 2015Q3

REPORT INFORMATION
  Report Type: Spontaneous
  Country: US (occurrence: US)
  Receive Date: 20150827
  Receipt Date: 20150827
  Transmission Date: 20151125
  Serious: No
  Sender: FDA-Public Use
  Company Number: US-JNJFOC-20141205732

PATIENT
  Age: 20 Year
  Sex: Female
  Weight: 68.95 kg

DRUGS (3)
  1. CHILDRENS MOTRIN [Suspect]
     Active Substance: IBUPROFEN
     Indication: PRODUCT USED FOR UNKNOWN INDICATION
     Dosage: 3 TEASPOONS
     Route: 048
     Dates: start: 20141203, end: 20141203
  2. CHILDRENS MOTRIN [Suspect]
     Active Substance: IBUPROFEN
     Route: 048
  3. AMOXICILLIN. [Concomitant]
     Active Substance: AMOXICILLIN
     Indication: NASOPHARYNGITIS
     Route: 065
     Dates: start: 20141202

REACTIONS (4)
  - Dizziness [Unknown]
  - Drug administered to patient of inappropriate age [Unknown]
  - Paraesthesia [Unknown]
  - Lip swelling [Recovered/Resolved]
